FAERS Safety Report 7582294-7 (Version None)
Quarter: 2011Q2

REPORT INFORMATION
  Report Type: 
  Country: None (occurrence: None)
  Receive Date: 20110630
  Receipt Date: 20110613
  Transmission Date: 20111010
  Serious: Yes (Hospitalization, Other)
  Sender: FDA-Public Use
  Company Number: US-BAYER-201027863NA

PATIENT
  Age: 22 Year
  Sex: Female
  Weight: 64.399 kg

DRUGS (15)
  1. NSAID'S [Concomitant]
     Dosage: UNK
     Dates: start: 20010101
  2. IMITREX [Concomitant]
     Indication: HEADACHE
     Dosage: UNK
     Route: 048
     Dates: start: 20080825
  3. ONDANSETRON [Concomitant]
     Indication: HEADACHE
     Dosage: 8 MG, BID
     Route: 048
     Dates: start: 20080826
  4. FLUTICASONE PROPIONATE [Concomitant]
  5. PANTOPRAZOLE [Concomitant]
     Dosage: 40 MG, UNK
  6. YASMIN [Suspect]
     Indication: CONTRACEPTION
     Dosage: UNK UNK, UNK
     Route: 048
     Dates: start: 20051027, end: 20080101
  7. ANTIBIOTICS [Concomitant]
     Dosage: UNK
     Dates: start: 20010101
  8. OXYCODONE HCL [Concomitant]
     Indication: HEADACHE
     Dosage: 5 MG, TID
     Route: 048
     Dates: start: 20080826
  9. FENTANYL [Concomitant]
     Dosage: 25 ?G, Q1HR
  10. PROMETHAZINE [Concomitant]
     Dosage: 12.5 MG, UNK
  11. YASMIN [Suspect]
     Indication: MENSTRUATION IRREGULAR
  12. TRAMADOL HCL [Concomitant]
     Indication: HEADACHE
     Dosage: 50 MG, QID
     Route: 048
     Dates: start: 20080910
  13. CIPROFLOXACIN HCL [Concomitant]
     Indication: URINARY TRACT INFECTION
     Dosage: 250 MG, QD
     Dates: start: 20080701
  14. DIAMOX [Concomitant]
     Indication: HEADACHE
     Dosage: UNK
     Dates: start: 20080901
  15. OXYCODONE HCL AND ACETAMINOPHEN [Concomitant]

REACTIONS (11)
  - SPEECH DISORDER [None]
  - NAUSEA [None]
  - CEREBRAL VENOUS THROMBOSIS [None]
  - VISION BLURRED [None]
  - HEADACHE [None]
  - PHONOPHOBIA [None]
  - PARAESTHESIA [None]
  - SUPERIOR SAGITTAL SINUS THROMBOSIS [None]
  - HYPOAESTHESIA [None]
  - MUSCULOSKELETAL STIFFNESS [None]
  - PHOTOPHOBIA [None]
